FAERS Safety Report 10434758 (Version 1)
Quarter: 2014Q3

REPORT INFORMATION
  Report Type: Spontaneous
  Country: US (occurrence: None)
  Receive Date: 20140815
  Receipt Date: 20140815
  Transmission Date: 20150326
  Serious: No
  Sender: FDA-Public Use
  Company Number: 2014TUS002754

PATIENT
  Age: 50 Year
  Sex: Female

DRUGS (3)
  1. BRINTELLIX [Suspect]
     Active Substance: VORTIOXETINE HYDROBROMIDE
     Indication: MAJOR DEPRESSION
     Route: 048
     Dates: start: 20140326, end: 20140329
  2. IBUPROFEN. [Concomitant]
     Active Substance: IBUPROFEN
  3. NORTREL (ETHINYLESTRADIOL, NORETHISTERONE) [Concomitant]

REACTIONS (2)
  - Dizziness [None]
  - Nausea [None]
